FAERS Safety Report 7560111-9 (Version None)
Quarter: 2011Q2

REPORT INFORMATION
  Report Type: 
  Country: None (occurrence: None)
  Receive Date: 20110621
  Receipt Date: 20110602
  Transmission Date: 20111010
  Serious: Yes (Hospitalization)
  Sender: FDA-Public Use
  Company Number: A0866370A

PATIENT
  Age: 66 Year
  Sex: Male

DRUGS (1)
  1. AVANDIA [Suspect]
     Dosage: 4MG PER DAY
     Route: 048
     Dates: start: 20050503, end: 20070601

REACTIONS (4)
  - CARDIAC FAILURE CONGESTIVE [None]
  - PAIN [None]
  - HEART RATE IRREGULAR [None]
  - CHEST PAIN [None]
